FAERS Safety Report 15943154 (Version 4)
Quarter: 2023Q1

REPORT INFORMATION
  Report Type: Spontaneous
  Country: US (occurrence: None)
  Receive Date: 20190210
  Receipt Date: 20230227
  Transmission Date: 20230418
  Serious: Yes (Other)
  Sender: FDA-Public Use
  Company Number: 2019SE09934

PATIENT
  Age: 32244 Day
  Sex: Female

DRUGS (17)
  1. NEXIUM [Suspect]
     Active Substance: ESOMEPRAZOLE MAGNESIUM
     Route: 048
     Dates: start: 20141201
  2. NEXIUM [Suspect]
     Active Substance: ESOMEPRAZOLE MAGNESIUM
     Dosage: GENERIC
     Route: 065
  3. NEXIUM [Suspect]
     Active Substance: ESOMEPRAZOLE MAGNESIUM
     Dosage: 40 MG
     Route: 048
     Dates: start: 20150210
  4. NEXIUM 24HR [Suspect]
     Active Substance: ESOMEPRAZOLE MAGNESIUM
     Route: 048
  5. ENALAPRIL [Concomitant]
     Active Substance: ENALAPRIL
  6. COREG [Concomitant]
     Active Substance: CARVEDILOL
  7. HYDROCHLOROTHIAZIDE [Concomitant]
     Active Substance: HYDROCHLOROTHIAZIDE
  8. SIMVASTATIN [Concomitant]
     Active Substance: SIMVASTATIN
  9. LEVOTHYROXINE [Concomitant]
     Active Substance: LEVOTHYROXINE
  10. ALDACTONE [Concomitant]
     Active Substance: SPIRONOLACTONE
  11. LEVOXYL [Concomitant]
     Active Substance: LEVOTHYROXINE SODIUM
  12. ASTEPRO [Concomitant]
     Active Substance: AZELASTINE HYDROCHLORIDE
  13. NITROSTAT [Concomitant]
     Active Substance: NITROGLYCERIN
  14. TYLENOL [Concomitant]
     Active Substance: ACETAMINOPHEN
  15. HYDRALAZINE [Concomitant]
     Active Substance: HYDRALAZINE HYDROCHLORIDE
  16. FUROSEMIDE [Concomitant]
     Active Substance: FUROSEMIDE
  17. PREDNISONE [Concomitant]
     Active Substance: PREDNISONE

REACTIONS (4)
  - Chronic kidney disease [Unknown]
  - Renal failure [Unknown]
  - Renal injury [Unknown]
  - Rebound acid hypersecretion [Unknown]

NARRATIVE: CASE EVENT DATE: 20190405
